FAERS Safety Report 8547388 (Version 5)
Quarter: 2012Q4

REPORT INFORMATION
  Report Type: 
  Country: JP (occurrence: JP)
  Receive Date: 20120504
  Receipt Date: 20120904
  Transmission Date: 20130627
  Serious: Yes (Other)
  Sender: FDA-Public Use
  Company Number: JP-JNJFOC-20120502809

PATIENT
  Age: 82 Year
  Sex: Female
  Weight: 42 kg

DRUGS (5)
  1. REMINYL [Suspect]
     Indication: DEMENTIA ALZHEIMER^S TYPE
     Route: 048
     Dates: start: 201204
  2. REMINYL [Suspect]
     Indication: DEMENTIA ALZHEIMER^S TYPE
     Route: 048
     Dates: start: 20120312, end: 20120424
  3. REMINYL [Suspect]
     Indication: DEMENTIA ALZHEIMER^S TYPE
     Route: 048
     Dates: start: 20120128, end: 20120311
  4. DONEPEZIL HYDROCHLORIDE [Suspect]
     Indication: PRODUCT USED FOR UNKNOWN INDICATION
     Route: 065
     Dates: end: 201204
  5. BLADDERON [Suspect]
     Indication: POLLAKIURIA
     Route: 048
     Dates: start: 20120130, end: 20120424

REACTIONS (1)
  - Cholestasis [Not Recovered/Not Resolved]
